FAERS Safety Report 26214107 (Version 1)
Quarter: 2025Q4

REPORT INFORMATION
  Report Type: Spontaneous
  Country: EU (occurrence: EU)
  Receive Date: 20251230
  Receipt Date: 20251230
  Transmission Date: 20260119
  Serious: Yes (Hospitalization)
  Sender: FRESENIUS KABI
  Company Number: None

PATIENT
  Age: 67 Year
  Sex: Male

DRUGS (4)
  1. IRINOTECAN [Suspect]
     Active Substance: IRINOTECAN
     Indication: Oesophageal squamous cell carcinoma metastatic
     Route: 042
     Dates: start: 20251124
  2. FLUOROURACIL [Suspect]
     Active Substance: FLUOROURACIL
     Indication: Oesophageal squamous cell carcinoma metastatic
     Dates: start: 20251124, end: 20251124
  3. PACLITAXEL [Concomitant]
     Active Substance: PACLITAXEL
     Indication: Oesophageal squamous cell carcinoma metastatic
     Route: 042
     Dates: start: 20250610, end: 20251117
  4. DEXAMETHASONE SODIUM PHOSPHATE [Concomitant]
     Active Substance: DEXAMETHASONE SODIUM PHOSPHATE
     Indication: Oesophageal squamous cell carcinoma metastatic
     Route: 048

REACTIONS (3)
  - Neutropenia [Recovered/Resolved]
  - Faecaloma [Recovered/Resolved]
  - Overflow diarrhoea [Recovered/Resolved]

NARRATIVE: CASE EVENT DATE: 20251124
